FAERS Safety Report 10354251 (Version 1)
Quarter: 2014Q3

REPORT INFORMATION
  Report Type: Spontaneous
  Country: JP (occurrence: None)
  Receive Date: 20140729
  Receipt Date: 20140729
  Transmission Date: 20150326
  Serious: Yes (Death, Other)
  Sender: FDA-Public Use
  Company Number: 2014CYTJP00001

PATIENT
  Age: 70 Year
  Sex: Female

DRUGS (2)
  1. CYTARABINE (CYTARABINE) LIPOSOME INJECTABLE SUSPENSION [Suspect]
     Active Substance: CYTARABINE
     Indication: B-CELL LYMPHOMA
     Dosage: ADMINISTERED AT A DOSE OF 40 OR 30 MG 17  OR 18 TIMES OVER 8 MONTHS.
  2. METHOTREXATE (METHOTREXATE) [Suspect]
     Active Substance: METHOTREXATE
     Indication: B-CELL LYMPHOMA
     Dosage: ADMINISTERED 17 TIMES OVER 8 MONTHS
     Route: 037

REACTIONS (16)
  - Hypergammaglobulinaemia [None]
  - Pyrexia [None]
  - Urinary incontinence [None]
  - Lymphoma [None]
  - Muscular weakness [None]
  - Gait disturbance [None]
  - Disorientation [None]
  - Depressed level of consciousness [None]
  - Paraplegia [None]
  - Swelling [None]
  - Spinal cord disorder [None]
  - Faecal incontinence [None]
  - Bronchopulmonary aspergillosis [None]
  - Myelopathy [None]
  - Haemosiderosis [None]
  - Neurotoxicity [None]
